FAERS Safety Report 24609445 (Version 1)
Quarter: 2024Q4

REPORT INFORMATION
  Report Type: Spontaneous
  Country: CN (occurrence: CN)
  Receive Date: 20241112
  Receipt Date: 20241112
  Transmission Date: 20250115
  Serious: Yes (Other)
  Sender: NOVARTIS
  Company Number: CN-002147023-NVSC2024CN064813

PATIENT
  Age: 56 Year
  Sex: Female

DRUGS (2)
  1. TASIGNA [Suspect]
     Active Substance: NILOTINIB
     Indication: Product used for unknown indication
     Dosage: 400 MG
     Route: 048
  2. GLIVEC [Suspect]
     Active Substance: IMATINIB MESYLATE
     Indication: Chronic myeloid leukaemia
     Dosage: 400 MG
     Route: 048
     Dates: start: 20140109

REACTIONS (4)
  - Disease progression [Unknown]
  - Chronic myeloid leukaemia [Unknown]
  - Adjustment disorder [Unknown]
  - Dermatitis allergic [Unknown]
